FAERS Safety Report 4305438-9 (Version None)
Quarter: 2004Q1

REPORT INFORMATION
  Report Type: 
  Country: None (occurrence: None)
  Receive Date: 20040226
  Receipt Date: 20031212
  Transmission Date: 20041129
  Serious: No
  Sender: FDA-Public Use
  Company Number: US-BRISTOL-MYERS SQUIBB COMPANY-12457032

PATIENT
  Age: 79 Year
  Sex: Female

DRUGS (2)
  1. TAXOL [Suspect]
     Indication: ENDOMETRIAL CANCER
  2. CARBOPLATIN [Suspect]
     Indication: ENDOMETRIAL CANCER

REACTIONS (1)
  - ADVERSE EVENT [None]
